FAERS Safety Report 16109094 (Version 1)
Quarter: 2019Q1

REPORT INFORMATION
  Report Type: Spontaneous
  Country: US (occurrence: US)
  Receive Date: 20190323
  Receipt Date: 20190323
  Transmission Date: 20190418
  Serious: No
  Sender: FDA-Public Use
  Company Number: US-THERAPEUTICSMD-2019TMD00123

PATIENT
  Sex: Female
  Weight: 52.15 kg

DRUGS (12)
  1. IMVEXXY [Suspect]
     Active Substance: ESTRADIOL
     Dosage: 10 ?G, 2X/WEEK BEFORE BED
     Route: 067
     Dates: start: 2018, end: 2018
  2. NATURE^S BOUNTY HAIR/SKIN/NAIL BIOTIN [Concomitant]
  3. VITAMIN D3 [Concomitant]
     Active Substance: CHOLECALCIFEROL
  4. IMVEXXY [Suspect]
     Active Substance: ESTRADIOL
     Indication: ATROPHIC VULVOVAGINITIS
     Dosage: 10 ?G, 2X/WEEK BEFORE BED
     Route: 067
     Dates: start: 2018, end: 2018
  5. IMVEXXY [Suspect]
     Active Substance: ESTRADIOL
     Indication: ATROPHIC VULVOVAGINITIS
     Dosage: 4 ?G, 2X/WEEK
     Route: 067
     Dates: start: 201812, end: 20190203
  6. ADVIL [Concomitant]
     Active Substance: IBUPROFEN
     Dosage: UNK, AS NEEDED
  7. OVER-THE-COUNTER ALLERGY PILL [Concomitant]
  8. PREMARIN [Suspect]
     Active Substance: ESTROGENS, CONJUGATED
     Indication: ATROPHIC VULVOVAGINITIS
     Dosage: UNK
     Dates: start: 2018
  9. VITAMIN B12 [Concomitant]
     Active Substance: CYANOCOBALAMIN
  10. PROBIOTIC [Concomitant]
     Active Substance: PROBIOTICS NOS
  11. VITAMIN C [Concomitant]
     Active Substance: ASCORBIC ACID
  12. SUMATRIPTAN. [Concomitant]
     Active Substance: SUMATRIPTAN
     Dosage: 50 MG, 1X/DAY AS NEEDED
     Route: 048

REACTIONS (8)
  - Migraine [Recovered/Resolved]
  - Middle insomnia [Recovered/Resolved]
  - Contraindicated product prescribed [Recovered/Resolved]
  - Feeling abnormal [Recovered/Resolved]
  - Off label use [Recovered/Resolved]
  - Headache [Recovered/Resolved]
  - Pain [Recovered/Resolved]
  - Product dose omission [Recovered/Resolved]

NARRATIVE: CASE EVENT DATE: 2018
